FAERS Safety Report 23291338 (Version 1)
Quarter: 2023Q4

REPORT INFORMATION
  Report Type: Spontaneous
  Country: US (occurrence: US)
  Receive Date: 20231213
  Receipt Date: 20231213
  Transmission Date: 20240110
  Serious: No
  Sender: FDA-Public Use
  Company Number: US-ELI_LILLY_AND_COMPANY-US202312004578

PATIENT
  Age: 60 Year
  Sex: Female

DRUGS (1)
  1. EMGALITY [Suspect]
     Active Substance: GALCANEZUMAB-GNLM
     Indication: Autonomic nervous system imbalance
     Dosage: 120 MG, UNKNOWN
     Route: 065
     Dates: start: 2019

REACTIONS (4)
  - Product dose omission issue [Unknown]
  - Brain fog [Unknown]
  - Off label use [Unknown]
  - Headache [Unknown]

NARRATIVE: CASE EVENT DATE: 20231127
